FAERS Safety Report 18247111 (Version 2)
Quarter: 2020Q3

REPORT INFORMATION
  Report Type: Spontaneous
  Country: US (occurrence: US)
  Receive Date: 20200909
  Receipt Date: 20200922
  Transmission Date: 20201103
  Serious: Yes (Other)
  Sender: FDA-Public Use
  Company Number: US-SA-2020SA240228

PATIENT

DRUGS (3)
  1. TRIAMCINOLONE ACETONIDE. [Concomitant]
     Active Substance: TRIAMCINOLONE ACETONIDE
     Dosage: UNK
  2. DUPIXENT [Suspect]
     Active Substance: DUPILUMAB
     Dosage: 300 MG, QOW
     Dates: start: 2020
  3. DUPIXENT [Suspect]
     Active Substance: DUPILUMAB
     Indication: DERMATITIS ATOPIC
     Dosage: 600 MG, 1X
     Dates: start: 20200814, end: 20200814

REACTIONS (11)
  - Scab [Unknown]
  - Discomfort [Unknown]
  - Pruritus [Unknown]
  - Unevaluable event [Unknown]
  - Pain [Unknown]
  - Respiratory tract infection [Unknown]
  - Eye disorder [Unknown]
  - Skin weeping [Unknown]
  - Dermatitis atopic [Unknown]
  - Condition aggravated [Unknown]
  - Rash macular [Unknown]

NARRATIVE: CASE EVENT DATE: 2020
